FAERS Safety Report 10050354 (Version 2)
Quarter: 2014Q2

REPORT INFORMATION
  Report Type: Spontaneous
  Country: JP (occurrence: JP)
  Receive Date: 20140401
  Receipt Date: 20140423
  Transmission Date: 20141212
  Serious: Yes (Death, Other)
  Sender: FDA-Public Use
  Company Number: JP-PFIZER INC-2014086632

PATIENT
  Age: 70 Year
  Sex: Male

DRUGS (2)
  1. AMPICILLIN SODIUM/SULBACTAM SODIUM [Suspect]
     Indication: PNEUMONIA
     Dosage: UNK
     Dates: start: 201210
  2. AMPICILLIN SODIUM/SULBACTAM SODIUM [Suspect]
     Indication: PYREXIA

REACTIONS (1)
  - Pyelonephritis fungal [Fatal]
